FAERS Safety Report 20951972 (Version 1)
Quarter: 2022Q2

REPORT INFORMATION
  Report Type: Spontaneous
  Country: US (occurrence: US)
  Receive Date: 20220613
  Receipt Date: 20220613
  Transmission Date: 20220721
  Serious: No
  Sender: FDA-Public Use
  Company Number: US-009507513-2206USA000293

PATIENT
  Age: 63 Year
  Sex: Female

DRUGS (2)
  1. NOXAFIL [Interacting]
     Active Substance: POSACONAZOLE
     Indication: Product used for unknown indication
     Dosage: 70 MILLIGRAM
     Route: 048
  2. VENCLEXTA [Suspect]
     Active Substance: VENETOCLAX
     Indication: Myelodysplastic syndrome
     Dosage: 100 MILLIGRAM, QD
     Route: 048

REACTIONS (1)
  - Drug interaction [Recovered/Resolved]
